FAERS Safety Report 12972006 (Version 1)
Quarter: 2016Q4

REPORT INFORMATION
  Report Type: Spontaneous
  Country: CH (occurrence: CH)
  Receive Date: 20161124
  Receipt Date: 20161124
  Transmission Date: 20170207
  Serious: Yes (Life-Threatening, Hospitalization)
  Sender: FDA-Public Use
  Company Number: CH-ASTRAZENECA-2016SF21952

PATIENT
  Age: 667 Month
  Sex: Male
  Weight: 107 kg

DRUGS (28)
  1. ISOPTIN [Interacting]
     Active Substance: VERAPAMIL HYDROCHLORIDE
     Indication: ATRIAL FIBRILLATION
     Route: 048
     Dates: end: 20161021
  2. SPIRICORT [Concomitant]
     Active Substance: PREDNISOLONE
     Route: 048
  3. MARCOUMAR [Concomitant]
     Active Substance: PHENPROCOUMON
     Indication: ATRIAL FIBRILLATION
     Dosage: DOSE UNKNOWN
     Route: 048
  4. PALLADON [Concomitant]
     Active Substance: HYDROMORPHONE
     Route: 048
  5. TRITTICO [Concomitant]
     Active Substance: TRAZODONE HYDROCHLORIDE
     Route: 048
  6. ROCALTROL [Concomitant]
     Active Substance: CALCITRIOL
     Route: 048
  7. TRESIBA [Concomitant]
     Active Substance: INSULIN DEGLUDEC
     Route: 058
  8. NOVORAPID [Concomitant]
     Active Substance: INSULIN ASPART
     Route: 058
  9. SOLU-MEDROL [Interacting]
     Active Substance: METHYLPREDNISOLONE SODIUM SUCCINATE
     Indication: FOOT OPERATION
     Dosage: 40.0MG UNKNOWN
     Route: 042
     Dates: start: 20161021, end: 20161021
  10. PALLADON [Concomitant]
     Active Substance: HYDROMORPHONE
     Route: 048
  11. PANTOPRAZOL [Concomitant]
     Active Substance: PANTOPRAZOLE SODIUM
     Route: 048
  12. ATORVASTATIN [Interacting]
     Active Substance: ATORVASTATIN
     Indication: PRODUCT USED FOR UNKNOWN INDICATION
     Route: 048
     Dates: start: 20161013
  13. ALDACTONE [Concomitant]
     Active Substance: SPIRONOLACTONE
     Route: 048
  14. KCL [Concomitant]
     Active Substance: POTASSIUM CHLORIDE
     Route: 048
  15. MAGNESIOCARD [Concomitant]
     Active Substance: MAGNESIUM ASPARTATE HYDROCHLORIDE
     Route: 048
  16. FENTANYL SINTETICA [Concomitant]
     Dosage: 25.0UG UNKNOWN
     Route: 040
  17. BELOC ZOK [Interacting]
     Active Substance: METOPROLOL SUCCINATE
     Indication: ATRIAL FIBRILLATION
     Route: 048
  18. PLAVIX [Interacting]
     Active Substance: CLOPIDOGREL BISULFATE
     Indication: PERIPHERAL ARTERIAL OCCLUSIVE DISEASE
     Route: 048
  19. CELLCEPT [Concomitant]
     Active Substance: MYCOPHENOLATE MOFETIL\MYCOPHENOLATE MOFETIL HYDROCHLORIDE
     Indication: RENAL TRANSPLANT
     Route: 048
  20. ZYLORIC [Concomitant]
     Active Substance: ALLOPURINOL
     Route: 048
  21. BARACLUDE [Concomitant]
     Active Substance: ENTECAVIR
     Indication: HEPATITIS B
     Route: 048
  22. NEURONTIN [Concomitant]
     Active Substance: GABAPENTIN
     Route: 048
  23. PRIMPERAN [Concomitant]
     Active Substance: METOCLOPRAMIDE HYDROCHLORIDE
     Dosage: 10.0ML UNKNOWN
     Route: 040
  24. BELOC ZOK [Suspect]
     Active Substance: METOPROLOL SUCCINATE
     Indication: ATRIAL FIBRILLATION
     Route: 048
  25. SANDIMMUN [Interacting]
     Active Substance: CYCLOSPORINE
     Indication: RENAL TRANSPLANT
     Route: 048
  26. TOREM [Concomitant]
     Active Substance: TORSEMIDE
     Route: 048
  27. STILNOX [Concomitant]
     Active Substance: ZOLPIDEM TARTRATE
     Dosage: 10.0MG UNKNOWN
     Route: 048
  28. CO-AMOXI [Concomitant]
     Active Substance: AMOXICILLIN\CLAVULANATE POTASSIUM

REACTIONS (3)
  - Drug interaction [Recovered/Resolved]
  - Atrioventricular block complete [Unknown]
  - Cardiogenic shock [Recovered/Resolved]

NARRATIVE: CASE EVENT DATE: 201610
